FAERS Safety Report 19176774 (Version 1)
Quarter: 2021Q2

REPORT INFORMATION
  Report Type: Spontaneous
  Country: CN (occurrence: CN)
  Receive Date: 20210424
  Receipt Date: 20210424
  Transmission Date: 20210717
  Serious: Yes (Hospitalization, Other)
  Sender: FDA-Public Use
  Company Number: CN-009507513-2104CHN005427

PATIENT
  Age: 70 Year
  Sex: Male
  Weight: 45 kg

DRUGS (4)
  1. TIENAM [Suspect]
     Active Substance: CILASTATIN SODIUM\IMIPENEM
     Indication: PNEUMONIA
     Dosage: 0.5 GRAM, Q8H, FORMULATION: POWDER FOR INJECTION
     Route: 041
     Dates: start: 20210401, end: 20210402
  2. TIENAM [Suspect]
     Active Substance: CILASTATIN SODIUM\IMIPENEM
     Dosage: 1 GRAM, Q6H, FORMULATION: POWDER FOR INJECTION
     Route: 041
     Dates: start: 20210402, end: 20210410
  3. SODIUM CHLORIDE. [Concomitant]
     Active Substance: SODIUM CHLORIDE
     Dosage: 100 MILLILITER, Q6H
     Route: 041
     Dates: start: 20210402, end: 20210410
  4. SODIUM CHLORIDE. [Concomitant]
     Active Substance: SODIUM CHLORIDE
     Indication: PNEUMONIA
     Dosage: 100 MILLILITER, Q8H
     Route: 041
     Dates: start: 20210401, end: 20210402

REACTIONS (2)
  - Toxic encephalopathy [Recovered/Resolved]
  - Incorrect dose administered [Unknown]

NARRATIVE: CASE EVENT DATE: 20210402
